FAERS Safety Report 5267517-1 (Version None)
Quarter: 2007Q1

REPORT INFORMATION
  Report Type: 
  Country: None (occurrence: None)
  Receive Date: 20061213
  Receipt Date: 20030902
  Transmission Date: 20070707
  Serious: No
  Sender: FDA-Public Use
  Company Number: 2003UW11036

PATIENT
  Sex: Female

DRUGS (2)
  1. NOLVADEX [Suspect]
     Indication: BREAST CANCER
  2. TAMOXIFEN CITRATE [Concomitant]

REACTIONS (2)
  - CATARACT [None]
  - PAIN IN EXTREMITY [None]
